FAERS Safety Report 16026914 (Version 1)
Quarter: 2019Q1

REPORT INFORMATION
  Report Type: Spontaneous
  Country: US (occurrence: US)
  Receive Date: 20190303
  Receipt Date: 20190303
  Transmission Date: 20190418
  Serious: No
  Sender: FDA-Public Use
  Company Number: US-IMPAX LABORATORIES, LLC-2018-IPXL-00133

PATIENT
  Age: 68 Year
  Sex: Female
  Weight: 60 kg

DRUGS (3)
  1. CARBIDOPA-LEVODOPA ER [Suspect]
     Active Substance: CARBIDOPA\LEVODOPA
     Indication: PARKINSON^S DISEASE
     Dosage: UNK
     Route: 065
  2. RYTARY [Suspect]
     Active Substance: CARBIDOPA\LEVODOPA
     Dosage: 36.25/145MG, 3 CAPSULES 8 AM, 2 CAPSULES 11 PM, 3 CAPSULES 2 PM, 2 CAPSULES 5 PM AND 2 CAPSULE 8 PM
     Route: 048
  3. RYTARY [Suspect]
     Active Substance: CARBIDOPA\LEVODOPA
     Indication: PARKINSON^S DISEASE
     Dosage: 48.75/195MG, 3 CAPSULES 8 AM, 2 CAPSULES 12 PM, 2 CAPSULES 4 PM, 2 CAPSULES 8 PM
     Route: 048

REACTIONS (7)
  - Drug effect delayed [Unknown]
  - Treatment noncompliance [Unknown]
  - Drug effect variable [Unknown]
  - Hypokinesia [Unknown]
  - Drug effect incomplete [Unknown]
  - Musculoskeletal stiffness [Not Recovered/Not Resolved]
  - Tremor [Unknown]
